FAERS Safety Report 9337324 (Version 2)
Quarter: 2013Q3

REPORT INFORMATION
  Report Type: Spontaneous
  Country: US (occurrence: US)
  Receive Date: 20130607
  Receipt Date: 20130712
  Transmission Date: 20140515
  Serious: Yes (Death, Hospitalization, Other)
  Sender: FDA-Public Use
  Company Number: US-JNJFOC-20130600170

PATIENT
  Age: 53 Year
  Sex: Female
  Weight: 53.07 kg

DRUGS (15)
  1. REMICADE [Suspect]
     Indication: CROHN^S DISEASE
     Dosage: 400MG ONCE 8 WEEKS SINCE APPROXIAMTELY 200 INFUSIONS
     Route: 042
     Dates: start: 201212, end: 20121217
  2. REMICADE [Suspect]
     Indication: CROHN^S DISEASE
     Dosage: TOTAL DOSE: 400MG
     Route: 042
     Dates: start: 2004
  3. 6-MERCAPTOPURINE [Suspect]
     Indication: PRODUCT USED FOR UNKNOWN INDICATION
     Route: 065
  4. REQUIP [Concomitant]
     Indication: RESTLESS LEGS SYNDROME
     Route: 065
  5. CIPRO [Concomitant]
     Route: 065
  6. MEGACE [Concomitant]
     Route: 065
  7. PERCOCET [Concomitant]
     Dosage: 10/305 MG AS NEEDED
     Route: 065
  8. COMBIVENT [Concomitant]
     Route: 065
  9. MAGNESIUM OXIDE [Concomitant]
     Route: 065
  10. VENTOLIN [Concomitant]
     Dosage: AS NECESSARY
     Route: 065
  11. ADVAIR [Concomitant]
     Route: 065
  12. VIDAZA [Concomitant]
     Route: 065
  13. ROPINIROLE [Concomitant]
     Dosage: AT NIGHT
     Route: 065
  14. LOMOTIL [Concomitant]
     Dosage: 2.5/0.025 MG  AS NECESSARY
     Route: 065
  15. CELEXA [Concomitant]
     Route: 065

REACTIONS (3)
  - Acute myeloid leukaemia [Fatal]
  - Renal failure chronic [Fatal]
  - Anaemia [Unknown]
